FAERS Safety Report 24675557 (Version 2)
Quarter: 2024Q4

REPORT INFORMATION
  Report Type: Spontaneous
  Country: JP (occurrence: JP)
  Receive Date: 20241128
  Receipt Date: 20241218
  Transmission Date: 20250115
  Serious: Yes (Hospitalization, Other)
  Sender: ROCHE
  Company Number: JP-CHUGAI-2024039332

PATIENT
  Age: 76 Year
  Sex: Male

DRUGS (2)
  1. AVASTIN [Suspect]
     Active Substance: BEVACIZUMAB
     Indication: Hepatocellular carcinoma
     Dosage: 15 MILLIGRAM, ONCE/3WEEKS
     Route: 042
     Dates: start: 20241023, end: 20241023
  2. TECENTRIQ [Suspect]
     Active Substance: ATEZOLIZUMAB
     Indication: Hepatocellular carcinoma
     Dosage: UNK
     Route: 042
     Dates: start: 20241023, end: 20241023

REACTIONS (6)
  - Melaena [Not Recovered/Not Resolved]
  - Varicose vein ruptured [Unknown]
  - Rectal ulcer [Unknown]
  - Pulmonary oedema [Unknown]
  - Eastern Cooperative Oncology Group performance status worsened [Unknown]
  - Bacterial infection [Unknown]

NARRATIVE: CASE EVENT DATE: 20241105
